FAERS Safety Report 13185425 (Version 1)
Quarter: 2017Q1

REPORT INFORMATION
  Report Type: Not Available
  Country: ES (occurrence: ES)
  Receive Date: 20170203
  Receipt Date: 20170203
  Transmission Date: 20170428
  Serious: Yes (Hospitalization, Other)
  Sender: FDA-Public Use
  Company Number: ES-MUNDIPHARMA DS AND PHARMACOVIGILANCE-GBR-2017-0043172

PATIENT
  Age: 85 Year
  Sex: Female

DRUGS (6)
  1. INSULIN [Concomitant]
     Active Substance: INSULIN NOS
     Indication: DIABETES MELLITUS
  2. SEVREDOL [Suspect]
     Active Substance: MORPHINE
     Indication: POLYNEUROPATHY
     Dosage: 10 MG, DAILY
     Route: 048
     Dates: start: 2016, end: 20161006
  3. XICIL [Interacting]
     Active Substance: GLUCOSAMINE SULFATE
     Indication: OSTEOARTHRITIS
     Dosage: 1-0-0
     Route: 048
     Dates: start: 2016, end: 20161006
  4. ORFIDAL [Interacting]
     Active Substance: LORAZEPAM
     Indication: PRODUCT USED FOR UNKNOWN INDICATION
     Dosage: 1 MG, DAILY (0-0-1)
     Route: 048
     Dates: start: 2016
  5. LEXATIN                            /00424801/ [Interacting]
     Active Substance: BROMAZEPAM
     Indication: PRODUCT USED FOR UNKNOWN INDICATION
     Dosage: 1.5 MG, DAILY (0-0-1)
     Route: 048
     Dates: start: 2016
  6. DUROGESIC MATRIX [Suspect]
     Active Substance: FENTANYL
     Indication: POLYNEUROPATHY
     Dosage: 75 MCG, Q1H
     Route: 062
     Dates: start: 2016, end: 20161006

REACTIONS (5)
  - Respiratory tract infection [Unknown]
  - Depressed level of consciousness [Recovering/Resolving]
  - Toxicity to various agents [Unknown]
  - Drug interaction [Unknown]
  - Aspiration bronchial [Unknown]

NARRATIVE: CASE EVENT DATE: 201610
